FAERS Safety Report 4702167-4 (Version None)
Quarter: 2005Q2

REPORT INFORMATION
  Report Type: 
  Country: None (occurrence: None)
  Receive Date: 20050629
  Receipt Date: 20050624
  Transmission Date: 20051028
  Serious: Yes (Death)
  Sender: FDA-Public Use
  Company Number: 200511869JP

PATIENT
  Age: 65 Year
  Sex: Male

DRUGS (2)
  1. TAXOTERE [Suspect]
     Indication: OESOPHAGEAL CARCINOMA
     Dates: start: 20050222, end: 20050405
  2. RADIATION THERAPY [Suspect]
     Indication: OESOPHAGEAL CARCINOMA

REACTIONS (1)
  - INTERSTITIAL LUNG DISEASE [None]
